FAERS Safety Report 15669938 (Version 1)
Quarter: 2018Q4

REPORT INFORMATION
  Report Type: Spontaneous
  Country: US (occurrence: US)
  Receive Date: 20181129
  Receipt Date: 20181129
  Transmission Date: 20190205
  Serious: Yes (Life-Threatening, Hospitalization, Other)
  Sender: FDA-Public Use
  Company Number: US-SUNOVION-2018SUN004642

PATIENT
  Sex: Female

DRUGS (1)
  1. LONHALA MAGNAIR [Suspect]
     Active Substance: GLYCOPYRROLATE
     Dosage: UNK
     Route: 055
     Dates: start: 2018

REACTIONS (9)
  - Fall [Recovered/Resolved]
  - Atrial fibrillation [Unknown]
  - Coma [Recovered/Resolved]
  - Haemorrhage [Recovered/Resolved]
  - Upper limb fracture [Recovering/Resolving]
  - Product dose omission [Unknown]
  - Meningitis viral [Recovered/Resolved]
  - Eye contusion [Not Recovered/Not Resolved]
  - Loss of consciousness [Recovered/Resolved]
